FAERS Safety Report 17548895 (Version 1)
Quarter: 2020Q1

REPORT INFORMATION
  Report Type: Spontaneous
  Country: DE (occurrence: DE)
  Receive Date: 20200317
  Receipt Date: 20200317
  Transmission Date: 20200409
  Serious: Yes (Death, Other)
  Sender: FDA-Public Use
  Company Number: DE-DRREDDYS-USA/GER/20/0120793

PATIENT
  Age: 60 Year
  Sex: Male

DRUGS (7)
  1. BORTEZOMIB. [Suspect]
     Active Substance: BORTEZOMIB
     Indication: ENCEPHALITIS
     Dosage: 3 CYCLES OF BORTEZOMIB 1-1.3 MG/M2
  2. RITUXIMAB. [Suspect]
     Active Substance: RITUXIMAB
     Indication: ENCEPHALITIS
  3. PREDNISOLONE. [Suspect]
     Active Substance: PREDNISOLONE
     Indication: ENCEPHALITIS
  4. IMMUNOGLOBULIN [IMMUNOGLOBULIN HUMAN NORMAL] [Suspect]
     Active Substance: HUMAN IMMUNOGLOBULIN G
     Indication: ENCEPHALITIS
     Dosage: FOR GREATER THAN 5 MONTHS
     Route: 042
  5. ACICLOVIR [Concomitant]
     Active Substance: ACYCLOVIR
     Indication: INFECTION PROPHYLAXIS
  6. DARATUMUMAB [Suspect]
     Active Substance: DARATUMUMAB
     Indication: ENCEPHALITIS
     Dosage: FOR A TOTAL OF 13 CYCLES (FIRST 8 CYCLES WEEKLY AND REMAINING CYCLES EVERY 2 WEEKS)
  7. METHYLPREDNISOLONE. [Suspect]
     Active Substance: METHYLPREDNISOLONE
     Indication: ENCEPHALITIS
     Dosage: 5X1G

REACTIONS (2)
  - Septic shock [Fatal]
  - Drug ineffective [Unknown]
